FAERS Safety Report 7405978-X (Version None)
Quarter: 2011Q2

REPORT INFORMATION
  Report Type: 
  Country: None (occurrence: None)
  Receive Date: 20110411
  Receipt Date: 20110207
  Transmission Date: 20111010
  Serious: Yes (Hospitalization, Other)
  Sender: FDA-Public Use
  Company Number: US-BAYER-201033915NA

PATIENT
  Age: 26 Year
  Sex: Female
  Weight: 91.61 kg

DRUGS (9)
  1. YASMIN [Suspect]
     Indication: PRODUCT USED FOR UNKNOWN INDICATION
     Dosage: UNK
     Dates: start: 20050101, end: 20070101
  2. TRIVORA-21 [Concomitant]
     Indication: CONTRACEPTION
  3. NASONEX [Concomitant]
  4. APRI [Concomitant]
  5. COUMADIN [Concomitant]
     Indication: PULMONARY EMBOLISM
     Dosage: UNK
     Dates: start: 20070501
  6. WOMEN+#8217;S ONE A DAY VITAMIN [Concomitant]
     Dosage: UNK UNK, QD
     Dates: start: 20070101, end: 20070527
  7. ZYRTEC [Concomitant]
     Dosage: 1 UNK, UNK
  8. YAZ [Suspect]
     Indication: PRODUCT USED FOR UNKNOWN INDICATION
     Dosage: UNK
     Dates: start: 20050101, end: 20050101
  9. MULTIVITAMINS WITH MINERALS [MULTIVITAMINS WITH MINERALS] [Concomitant]
     Dosage: UNK UNK, QD

REACTIONS (7)
  - PULMONARY EMBOLISM [None]
  - PULMONARY HYPERTENSION [None]
  - DYSPNOEA [None]
  - CHEST PAIN [None]
  - OEDEMA PERIPHERAL [None]
  - CHEST DISCOMFORT [None]
  - PAIN IN EXTREMITY [None]
